FAERS Safety Report 18612512 (Version 1)
Quarter: 2020Q4

REPORT INFORMATION
  Report Type: Spontaneous
  Country: US (occurrence: US)
  Receive Date: 20201214
  Receipt Date: 20201214
  Transmission Date: 20210114
  Serious: Yes (Hospitalization, Other)
  Sender: FDA-Public Use
  Company Number: US-INDIVIOR US-INDV-127557-2020

PATIENT
  Age: 41 Year
  Sex: Male
  Weight: 63.49 kg

DRUGS (5)
  1. SUBOXONE [Suspect]
     Active Substance: BUPRENORPHINE HYDROCHLORIDE\NALOXONE HYDROCHLORIDE
     Dosage: UNK (CUTTING THE FILM)
     Route: 060
     Dates: end: 20201203
  2. SUBOXONE [Suspect]
     Active Substance: BUPRENORPHINE HYDROCHLORIDE\NALOXONE HYDROCHLORIDE
     Dosage: 32 MG, UNK
     Route: 060
  3. SUBOXONE [Suspect]
     Active Substance: BUPRENORPHINE HYDROCHLORIDE\NALOXONE HYDROCHLORIDE
     Dosage: 8 MILLIGRAM, QD
     Route: 060
     Dates: start: 20201204
  4. SUBOXONE [Suspect]
     Active Substance: BUPRENORPHINE HYDROCHLORIDE\NALOXONE HYDROCHLORIDE
     Indication: DRUG DEPENDENCE
     Dosage: UNK (CUTTING THE FILM)
     Route: 060
     Dates: start: 2007
  5. OXYCODONE [Concomitant]
     Active Substance: OXYCODONE
     Indication: PAIN
     Dosage: 30 MG, UNK
     Route: 065

REACTIONS (14)
  - Fracture [Recovered/Resolved]
  - Depression [Not Recovered/Not Resolved]
  - Intentional underdose [Unknown]
  - Drug effect less than expected [Not Recovered/Not Resolved]
  - Suicidal ideation [Not Recovered/Not Resolved]
  - Tooth loss [Unknown]
  - Drug detoxification [Recovered/Resolved]
  - Weight decreased [Unknown]
  - Gallbladder disorder [Recovered/Resolved]
  - Intervertebral disc degeneration [Unknown]
  - Drug withdrawal syndrome [Not Recovered/Not Resolved]
  - Dental caries [Unknown]
  - Wrong technique in product usage process [Not Recovered/Not Resolved]
  - Intentional product use issue [Recovered/Resolved]

NARRATIVE: CASE EVENT DATE: 2007
